FAERS Safety Report 9637389 (Version 2)
Quarter: 2013Q4

REPORT INFORMATION
  Report Type: Spontaneous
  Country: PL (occurrence: PL)
  Receive Date: 20131022
  Receipt Date: 20131101
  Transmission Date: 20140711
  Serious: Yes (Death, Hospitalization)
  Sender: FDA-Public Use
  Company Number: PHHY2013PL117746

PATIENT
  Age: 23 Year
  Sex: Male

DRUGS (1)
  1. CARBAMAZEPINE [Suspect]

REACTIONS (9)
  - Toxicity to various agents [Fatal]
  - Completed suicide [Fatal]
  - Cardiovascular insufficiency [Fatal]
  - Respiratory failure [Fatal]
  - Loss of consciousness [Fatal]
  - Drug level increased [Fatal]
  - Unresponsive to stimuli [Fatal]
  - Cardiac arrest [Fatal]
  - Coma scale abnormal [Unknown]
